FAERS Safety Report 18386430 (Version 3)
Quarter: 2020Q4

REPORT INFORMATION
  Report Type: Spontaneous
  Country: US (occurrence: US)
  Receive Date: 20201015
  Receipt Date: 20201117
  Transmission Date: 20210114
  Serious: No
  Sender: FDA-Public Use
  Company Number: US-GLAXOSMITHKLINE-US2020199160

PATIENT
  Age: 75 Year
  Sex: Female

DRUGS (3)
  1. NUCALA [Suspect]
     Active Substance: MEPOLIZUMAB
     Indication: ASTHMA
     Dosage: 100 MG, CYC, MONTHLY
     Dates: start: 202009
  2. NUCALA [Suspect]
     Active Substance: MEPOLIZUMAB
     Indication: ASTHMA
     Dosage: UNK
  3. TRELEGY ELLIPTA [Suspect]
     Active Substance: FLUTICASONE FUROATE\UMECLIDINIUM BROMIDE\VILANTEROL TRIFENATATE
     Indication: PRODUCT USED FOR UNKNOWN INDICATION
     Dosage: 1 PUFF(S), QD, EACH MORNING
     Route: 065

REACTIONS (6)
  - Pain [Unknown]
  - Herpes zoster [Unknown]
  - Headache [Unknown]
  - Dizziness [Recovered/Resolved]
  - Stress [Unknown]
  - Hot flush [Unknown]

NARRATIVE: CASE EVENT DATE: 20201110
